FAERS Safety Report 10837025 (Version 1)
Quarter: 2015Q1

REPORT INFORMATION
  Report Type: Report from Study
  Country: US (occurrence: US)
  Receive Date: 20150219
  Receipt Date: 20150219
  Transmission Date: 20150721
  Serious: No
  Sender: FDA-Public Use
  Company Number: US-ABBVIE-14P-163-1221613-00

PATIENT
  Age: 49 Year
  Sex: Female

DRUGS (2)
  1. HUMIRA [Suspect]
     Active Substance: ADALIMUMAB
     Indication: PSORIASIS
     Dates: start: 20140123, end: 20140123
  2. HUMIRA [Suspect]
     Active Substance: ADALIMUMAB
     Dates: start: 20140206, end: 20140306

REACTIONS (4)
  - Drug ineffective [Unknown]
  - Insomnia [Recovered/Resolved]
  - Pruritus generalised [Recovered/Resolved]
  - Rash papular [Recovered/Resolved]

NARRATIVE: CASE EVENT DATE: 20140206
